FAERS Safety Report 10786625 (Version 1)
Quarter: 2015Q1

REPORT INFORMATION
  Report Type: Spontaneous
  Country: IN (occurrence: IN)
  Receive Date: 20150211
  Receipt Date: 20150211
  Transmission Date: 20150721
  Serious: Yes (Other)
  Sender: FDA-Public Use
  Company Number: PHHY2015IN013944

PATIENT
  Age: 65 Year
  Sex: Male

DRUGS (1)
  1. HEPARIN [Suspect]
     Active Substance: HEPARIN SODIUM
     Indication: PRODUCT USED FOR UNKNOWN INDICATION
     Route: 013

REACTIONS (5)
  - Blister [Recovered/Resolved]
  - Peripheral swelling [Unknown]
  - Skin necrosis [Recovered/Resolved]
  - Thrombophlebitis superficial [Unknown]
  - Pain in extremity [Unknown]
